FAERS Safety Report 5206909-3 (Version None)
Quarter: 2007Q1

REPORT INFORMATION
  Report Type: 
  Country: None (occurrence: None)
  Receive Date: 20070105
  Receipt Date: 20070105
  Transmission Date: 20070707
  Serious: Yes (Life-Threatening)
  Sender: FDA-Public Use
  Company Number: None

PATIENT
  Age: 70 Year
  Sex: Female
  Weight: 64.2 kg

DRUGS (6)
  1. BIVALIRUDIN [Suspect]
     Indication: DRUG THERAPY
     Dosage: 12.75MG IV X 1;  29.75MG/HR
     Route: 042
     Dates: start: 20060818
  2. AMIODARONE HCL [Concomitant]
  3. ENALAPRIL MALEATE [Concomitant]
  4. HYDROMORPHONE HCL [Concomitant]
  5. LORAZEPAM [Concomitant]
  6. ACETYLCYSTEINE [Concomitant]

REACTIONS (4)
  - HYPOTENSION [None]
  - INFUSION RELATED REACTION [None]
  - LOSS OF CONSCIOUSNESS [None]
  - THROMBOSIS [None]
